FAERS Safety Report 6619810-5 (Version None)
Quarter: 2010Q1

REPORT INFORMATION
  Report Type: 
  Country: None (occurrence: None)
  Receive Date: 20100303
  Receipt Date: 20100218
  Transmission Date: 20100710
  Serious: No
  Sender: FDA-Public Use
  Company Number: 512051

PATIENT
  Age: 57 Year
  Sex: Female
  Weight: 97 kg

DRUGS (6)
  1. PACLITAXEL [Suspect]
     Indication: BREAST CANCER
     Dosage: ONCE, INTRAVENOUS
     Route: 042
     Dates: start: 20100218, end: 20100218
  2. SODIUM CHLORIDE [Concomitant]
  3. BENADRYL [Concomitant]
  4. PEPCID [Concomitant]
  5. DECADRON [Concomitant]
  6. ZOFRAN [Concomitant]

REACTIONS (4)
  - CHEST DISCOMFORT [None]
  - CHEST PAIN [None]
  - DYSPNOEA [None]
  - FLUSHING [None]
